FAERS Safety Report 8235335-8 (Version None)
Quarter: 2012Q1

REPORT INFORMATION
  Report Type: 
  Country: None (occurrence: None)
  Receive Date: 20120326
  Receipt Date: 20120313
  Transmission Date: 20120608
  Serious: Yes (Hospitalization, Other)
  Sender: FDA-Public Use
  Company Number: FR-ELI_LILLY_AND_COMPANY-FR201203004733

PATIENT
  Sex: Male

DRUGS (1)
  1. UMATROPE [Suspect]
     Dosage: UNK
     Route: 058
     Dates: start: 20110901

REACTIONS (1)
  - PITUITARY TUMOUR RECURRENT [None]
